FAERS Safety Report 23894168 (Version 1)
Quarter: 2024Q2

REPORT INFORMATION
  Report Type: Spontaneous
  Country: US (occurrence: None)
  Receive Date: 20240524
  Receipt Date: 20240524
  Transmission Date: 20240716
  Serious: No
  Sender: FDA-Public Use
  Company Number: US-ROCHE-3466757

PATIENT
  Sex: Male
  Weight: 102.15 kg

DRUGS (3)
  1. OCREVUS [Suspect]
     Active Substance: OCRELIZUMAB
     Indication: Primary progressive multiple sclerosis
     Dosage: ONGOING: YES
     Route: 042
     Dates: start: 202305
  2. BACLOFEN [Concomitant]
     Active Substance: BACLOFEN
  3. DALFAMPRIDINE [Concomitant]
     Active Substance: DALFAMPRIDINE

REACTIONS (2)
  - Drug monitoring procedure not performed [Unknown]
  - No adverse event [Unknown]

NARRATIVE: CASE EVENT DATE: 20231121
